FAERS Safety Report 12239184 (Version 2)
Quarter: 2016Q2

REPORT INFORMATION
  Report Type: Report from Study
  Country: US (occurrence: US)
  Receive Date: 20160405
  Receipt Date: 20160429
  Transmission Date: 20160815
  Serious: Yes (Death, Hospitalization, Other)
  Sender: FDA-Public Use
  Company Number: US-GILEAD-2016-0204842

PATIENT
  Age: 14 Year
  Sex: Female
  Weight: 32.7 kg

DRUGS (30)
  1. ADEKS                              /06351501/ [Concomitant]
  2. AMITRIPTYLINE [Concomitant]
     Active Substance: AMITRIPTYLINE
  3. CREON [Concomitant]
     Active Substance: PANCRELIPASE AMYLASE\PANCRELIPASE LIPASE\PANCRELIPASE PROTEASE
  4. LEVSIN [Concomitant]
     Active Substance: HYOSCYAMINE SULFATE
  5. PULMOZYME [Concomitant]
     Active Substance: DORNASE ALFA
  6. ZINC GLUCONATE [Concomitant]
     Active Substance: ZINC GLUCONATE
  7. AZTREONAM LYSINE [Suspect]
     Active Substance: AZTREONAM LYSINE
     Indication: PSEUDOMONAS INFECTION
  8. IMODIUM [Concomitant]
     Active Substance: LOPERAMIDE HYDROCHLORIDE
  9. PYRIDOXINE [Concomitant]
     Active Substance: PYRIDOXINE
  10. RACEPINEPHRINE                     /00003903/ [Concomitant]
  11. HYPERSAL [Concomitant]
  12. XOPENEX [Concomitant]
     Active Substance: LEVALBUTEROL HYDROCHLORIDE
  13. ZYVOX [Concomitant]
     Active Substance: LINEZOLID
  14. MEPHYTON [Concomitant]
     Active Substance: PHYTONADIONE
  15. ONDANSETRON [Concomitant]
     Active Substance: ONDANSETRON
  16. ZYRTEC [Concomitant]
     Active Substance: CETIRIZINE HYDROCHLORIDE
  17. AZTREONAM LYSINE [Suspect]
     Active Substance: AZTREONAM LYSINE
     Indication: CYSTIC FIBROSIS
     Dosage: 75 MG, TID, 28 DAYS ON/OFF
     Route: 055
     Dates: start: 20100405, end: 2011
  18. NYSTATIN AND TRIAMCINOLONE [Concomitant]
     Active Substance: NYSTATIN\TRIAMCINOLONE ACETONIDE
  19. TOBI [Concomitant]
     Active Substance: TOBRAMYCIN
  20. CALCIUM CARBONATE. [Concomitant]
     Active Substance: CALCIUM CARBONATE
  21. COLISTIN [Concomitant]
     Active Substance: COLISTIN
  22. HYOSCYAMINE. [Concomitant]
     Active Substance: HYOSCYAMINE
  23. MYCOLOG-II [Concomitant]
     Active Substance: NYSTATIN\TRIAMCINOLONE ACETONIDE
  24. SODIUM CHLORIDE. [Concomitant]
     Active Substance: SODIUM CHLORIDE
  25. OXYGEN. [Concomitant]
     Active Substance: OXYGEN
  26. ACIDOPHILUS [Concomitant]
     Active Substance: LACTOBACILLUS ACIDOPHILUS
  27. CYPROHEPTADINE. [Concomitant]
     Active Substance: CYPROHEPTADINE
  28. DEXILANT [Concomitant]
     Active Substance: DEXLANSOPRAZOLE
  29. NASONEX [Concomitant]
     Active Substance: MOMETASONE FUROATE
  30. URSODIOL. [Concomitant]
     Active Substance: URSODIOL

REACTIONS (10)
  - Obstructive airways disorder [Unknown]
  - Infective pulmonary exacerbation of cystic fibrosis [Fatal]
  - Chest pain [Unknown]
  - Haemoptysis [Unknown]
  - Infective exacerbation of bronchiectasis [Unknown]
  - Mycobacterial infection [Unknown]
  - Lower respiratory tract infection [Unknown]
  - Cardiopulmonary failure [Fatal]
  - Pseudomonas infection [Unknown]
  - Pneumothorax [Unknown]

NARRATIVE: CASE EVENT DATE: 2011
